FAERS Safety Report 19235716 (Version 1)
Quarter: 2021Q2

REPORT INFORMATION
  Report Type: Other
  Country: HR (occurrence: HR)
  Receive Date: 20210510
  Receipt Date: 20210510
  Transmission Date: 20210717
  Serious: Yes (Life-Threatening, Hospitalization)
  Sender: FDA-Public Use
  Company Number: HR-CELLTRION INC.-2021HR006239

PATIENT

DRUGS (1)
  1. TRUXIMA [Suspect]
     Active Substance: RITUXIMAB-ABBS
     Indication: NON-HODGKIN^S LYMPHOMA
     Dosage: 568 MG, QD
     Route: 042
     Dates: start: 20201211, end: 20201211

REACTIONS (9)
  - Thrombocytopenia [Recovered/Resolved]
  - Chest discomfort [Recovered/Resolved]
  - C-reactive protein increased [Recovered/Resolved]
  - Splenomegaly [Recovered/Resolved]
  - Hypotension [Recovered/Resolved]
  - Drug hypersensitivity [Recovered/Resolved]
  - Erythema [Recovered/Resolved]
  - Anaemia [Recovered/Resolved]
  - Pyrexia [Recovered/Resolved]

NARRATIVE: CASE EVENT DATE: 20201211
